FAERS Safety Report 14838979 (Version 4)
Quarter: 2020Q1

REPORT INFORMATION
  Report Type: Report from Study
  Country: JP (occurrence: JP)
  Receive Date: 20180502
  Receipt Date: 20200106
  Transmission Date: 20200409
  Serious: Yes (Hospitalization, Other)
  Sender: FDA-Public Use
  Company Number: JP-OTSUKA-2018_010983

PATIENT
  Age: 53 Year
  Sex: Female
  Weight: 104 kg

DRUGS (6)
  1. TOLVAPTAN [Suspect]
     Active Substance: TOLVAPTAN
     Dosage: 30MG/DAY, DIVIDE TWO DOSES (EACH DOSE UNKNOWN)
     Route: 048
     Dates: start: 20151113, end: 20151115
  2. TOLVAPTAN [Suspect]
     Active Substance: TOLVAPTAN
     Dosage: 30MG/DAY, DIVIDE TWO DOSES (EACH DOSE UNKNOWN)
     Route: 048
     Dates: start: 20151223, end: 20160216
  3. TOLVAPTAN [Suspect]
     Active Substance: TOLVAPTAN
     Dosage: 15 MG, QD
     Route: 048
     Dates: start: 20151116, end: 20151222
  4. NU-LOTAN [Concomitant]
     Active Substance: LOSARTAN POTASSIUM
     Indication: PRODUCT USED FOR UNKNOWN INDICATION
     Dosage: 100 MG, QD
     Route: 048
  5. AMLODIPINE [Concomitant]
     Active Substance: AMLODIPINE BESYLATE
     Indication: PRODUCT USED FOR UNKNOWN INDICATION
     Dosage: 10 MG, QD
     Route: 048
  6. TOLVAPTAN [Suspect]
     Active Substance: TOLVAPTAN
     Indication: CONGENITAL CYSTIC KIDNEY DISEASE
     Dosage: 45MG/DAY, DIVIDE TWO DOSES (EACH DOSE UNKNOWN)
     Route: 048
     Dates: start: 20160217, end: 20160405

REACTIONS (7)
  - Bile duct stenosis [Unknown]
  - Liver disorder [Recovering/Resolving]
  - Constipation [Recovering/Resolving]
  - Hypernatraemia [Recovered/Resolved]
  - Liver disorder [Recovered/Resolved]
  - Biliary dilatation [Unknown]
  - Inappropriate schedule of product administration [Unknown]

NARRATIVE: CASE EVENT DATE: 2016
